FAERS Safety Report 19690284 (Version 1)
Quarter: 2021Q3

REPORT INFORMATION
  Report Type: Spontaneous
  Country: NL (occurrence: IE)
  Receive Date: 20210812
  Receipt Date: 20210812
  Transmission Date: 20211014
  Serious: Yes (Hospitalization)
  Sender: FDA-Public Use
  Company Number: IE-FRESENIUS KABI-FK202108342

PATIENT
  Age: 76 Year
  Sex: Male
  Weight: 67 kg

DRUGS (11)
  1. CYTARABINE (MANUFACTURER UNKNOWN) [Suspect]
     Active Substance: CYTARABINE
     Indication: NON-SMALL CELL LUNG CANCER
     Dosage: CYTOSINE ARABINOSIDE
     Route: 065
     Dates: start: 20200609, end: 20200630
  2. VINCRISTINE [Suspect]
     Active Substance: VINCRISTINE
     Indication: NON-SMALL CELL LUNG CANCER
     Route: 065
     Dates: start: 20200720, end: 20200825
  3. PACLITAXEL. [Suspect]
     Active Substance: PACLITAXEL
     Route: 042
     Dates: start: 20200609, end: 20200630
  4. PACLITAXEL. [Suspect]
     Active Substance: PACLITAXEL
     Indication: NON-SMALL CELL LUNG CANCER
     Dosage: 135 MG/M2
     Route: 042
     Dates: start: 20200609, end: 20200630
  5. CARBOPLATIN (MANUFACTURER UNKNOWN) [Suspect]
     Active Substance: CARBOPLATIN
     Route: 065
     Dates: start: 20200609, end: 20200630
  6. CARBOPLATIN (MANUFACTURER UNKNOWN) [Suspect]
     Active Substance: CARBOPLATIN
     Indication: NON-SMALL CELL LUNG CANCER
     Route: 065
     Dates: start: 20200720, end: 20200825
  7. CYTARABINE (MANUFACTURER UNKNOWN) [Suspect]
     Active Substance: CYTARABINE
     Dosage: CYTOSINE ARABINOSIDE
     Route: 065
     Dates: start: 20200720, end: 20200825
  8. VINCRISTINE [Suspect]
     Active Substance: VINCRISTINE
     Route: 065
     Dates: start: 20200609, end: 20200630
  9. DOXORUBICIN HYDROCHLORIDE. [Suspect]
     Active Substance: DOXORUBICIN HYDROCHLORIDE
     Indication: NON-SMALL CELL LUNG CANCER
     Dosage: DOXIL LIPOSOMAL INFUSION
     Route: 065
     Dates: start: 20200609, end: 20200630
  10. DOXORUBICIN HYDROCHLORIDE. [Suspect]
     Active Substance: DOXORUBICIN HYDROCHLORIDE
     Dosage: DOXIL LIPOSOMAL INFUSION
     Route: 065
     Dates: start: 20200720, end: 20200825
  11. SODIUM CHLORIDE. [Suspect]
     Active Substance: SODIUM CHLORIDE
     Indication: MEDICATION DILUTION
     Route: 042
     Dates: start: 20200609, end: 20200630

REACTIONS (3)
  - Product use in unapproved indication [Unknown]
  - Presyncope [Recovered/Resolved]
  - Off label use [Unknown]

NARRATIVE: CASE EVENT DATE: 20200609
